FAERS Safety Report 14295735 (Version 1)
Quarter: 2017Q4

REPORT INFORMATION
  Report Type: Spontaneous
  Country: US (occurrence: US)
  Receive Date: 20171215
  Receipt Date: 20171215
  Transmission Date: 20180321
  Serious: No
  Sender: FDA-Public Use
  Company Number: None

PATIENT
  Age: 63 Year
  Sex: Female

DRUGS (1)
  1. IBRANCE [Suspect]
     Active Substance: PALBOCICLIB
     Indication: BREAST CANCER
     Dosage: 75MG  DAILY 2 WKS ON 2 WKS OFF ORAL?
     Route: 048
     Dates: start: 20170418

REACTIONS (1)
  - Bone pain [None]

NARRATIVE: CASE EVENT DATE: 20171125
